FAERS Safety Report 5520553-X (Version None)
Quarter: 2007Q4

REPORT INFORMATION
  Report Type: 
  Country: None (occurrence: None)
  Receive Date: 20071115
  Receipt Date: 20071101
  Transmission Date: 20080405
  Serious: Yes (Death)
  Sender: FDA-Public Use
  Company Number: 2007S1000420

PATIENT
  Age: 50 Year
  Sex: Female
  Weight: 182 kg

DRUGS (3)
  1. CUBICIN [Suspect]
     Indication: CULTURE URINE POSITIVE
     Dosage: 7.2 MG/KG; Q48H; IV
     Route: 042
     Dates: start: 20070101, end: 20070124
  2. CUBICIN [Suspect]
     Indication: ENTEROCOCCAL BACTERAEMIA
     Dosage: 7.2 MG/KG; Q48H; IV
     Route: 042
     Dates: start: 20070101, end: 20070124
  3. LINEZOLID [Concomitant]

REACTIONS (4)
  - ACUTE RESPIRATORY DISTRESS SYNDROME [None]
  - ENTEROCOCCAL BACTERAEMIA [None]
  - PNEUMONIA BACTERIAL [None]
  - RESPIRATORY FAILURE [None]
